FAERS Safety Report 19030216 (Version 1)
Quarter: 2021Q1

REPORT INFORMATION
  Report Type: Spontaneous
  Country: US (occurrence: US)
  Receive Date: 20210318
  Receipt Date: 20210318
  Transmission Date: 20210420
  Serious: Yes (Other)
  Sender: FDA-Public Use
  Company Number: None

PATIENT
  Age: 67 Year
  Sex: Male
  Weight: 69.75 kg

DRUGS (2)
  1. REMICADE [Suspect]
     Active Substance: INFLIXIMAB
     Indication: PSORIATIC ARTHROPATHY
     Route: 058
     Dates: start: 20210203, end: 20210203
  2. MULTIPLE VITAMINS [Concomitant]
     Active Substance: VITAMINS

REACTIONS (9)
  - Endodontic procedure [None]
  - Arthralgia [None]
  - Trismus [None]
  - Pustule [None]
  - Pain [None]
  - Insomnia [None]
  - Gait disturbance [None]
  - Crying [None]
  - Pain in extremity [None]

NARRATIVE: CASE EVENT DATE: 20210318
